FAERS Safety Report 7330782-0 (Version None)
Quarter: 2011Q1

REPORT INFORMATION
  Report Type: 
  Country: None (occurrence: None)
  Receive Date: 20110304
  Receipt Date: 20110228
  Transmission Date: 20110831
  Serious: Yes (Hospitalization, Other)
  Sender: FDA-Public Use
  Company Number: US-PFIZER INC-2011044458

PATIENT
  Sex: Female

DRUGS (1)
  1. CHANTIX [Suspect]
     Dosage: UNK
     Route: 048
     Dates: start: 20061001

REACTIONS (6)
  - ANGER [None]
  - PARANOIA [None]
  - SUICIDAL BEHAVIOUR [None]
  - ANXIETY [None]
  - CONVULSION [None]
  - DEPRESSION [None]
